FAERS Safety Report 4509833-4 (Version None)
Quarter: 2004Q4

REPORT INFORMATION
  Report Type: 
  Country: None (occurrence: None)
  Receive Date: 20041124
  Receipt Date: 20041001
  Transmission Date: 20050328
  Serious: Yes (Other)
  Sender: FDA-Public Use
  Company Number: PHEH2004US10593

PATIENT
  Age: 66 Year
  Sex: Female

DRUGS (16)
  1. ZOMETA [Suspect]
     Indication: MULTIPLE MYELOMA
     Dosage: 4 MG MONTHLY
     Dates: start: 20020713
  2. DEXAMETHASONE [Concomitant]
  3. KLOR-CON [Concomitant]
  4. AVALIDE [Concomitant]
  5. IRON REDUCED [Concomitant]
  6. K-DUR 10 [Concomitant]
  7. POTASSIUM CHLORIDE [Concomitant]
  8. MAGIC MOUTHWASH [Concomitant]
  9. LORTAB [Concomitant]
  10. ZYRTEC [Concomitant]
  11. THALIDOMIDE [Concomitant]
  12. MELPHALAN [Concomitant]
  13. ARANESP [Concomitant]
  14. PREDNISONE [Concomitant]
  15. PROCRIT [Concomitant]
  16. VITAMIN B-12 [Concomitant]

REACTIONS (12)
  - ABSCESS DRAINAGE [None]
  - BIOPSY BONE ABNORMAL [None]
  - IMPAIRED HEALING [None]
  - LOCALISED INFECTION [None]
  - MUCOSAL INFLAMMATION [None]
  - OSTEOMYELITIS CHRONIC [None]
  - OSTEONECROSIS [None]
  - POST PROCEDURAL DRAINAGE [None]
  - POSTOPERATIVE INFECTION [None]
  - TOOTH ABSCESS [None]
  - TOOTH EXTRACTION [None]
  - WOUND TREATMENT [None]
